FAERS Safety Report 15335515 (Version 1)
Quarter: 2018Q3

REPORT INFORMATION
  Report Type: Spontaneous
  Country: US (occurrence: US)
  Receive Date: 20180827
  Receipt Date: 20180827
  Transmission Date: 20181010
  Serious: Yes (Death, Disabling)
  Sender: FDA-Public Use
  Company Number: None

PATIENT
  Age: 49 Year
  Sex: Male

DRUGS (1)
  1. AMOXICILLIN/CLAVULANIC ACID [Suspect]
     Active Substance: AMOXICILLIN\CLAVULANIC ACID
     Indication: INFECTION
     Route: 048

REACTIONS (8)
  - Clostridium difficile colitis [None]
  - Ascites [None]
  - Thrombocytopenia [None]
  - Hypotension [None]
  - Megacolon [None]
  - Multiple organ dysfunction syndrome [None]
  - Splenomegaly [None]
  - Shock [None]

NARRATIVE: CASE EVENT DATE: 20180805
